FAERS Safety Report 8352544-8 (Version None)
Quarter: 2012Q2

REPORT INFORMATION
  Report Type: 
  Country: None (occurrence: None)
  Receive Date: 20120511
  Receipt Date: 20120509
  Transmission Date: 20120825
  Serious: Yes (Hospitalization, Other)
  Sender: FDA-Public Use
  Company Number: PHHY2012NL034278

PATIENT
  Sex: Male
  Weight: 78 kg

DRUGS (5)
  1. ZOMETA [Suspect]
     Dosage: 4 MG/100ML, SOLUTION FOR INFUSION (INTRAVENOUS), 1X PER 28 DAYS
     Route: 042
     Dates: start: 20111103
  2. ZOMETA [Suspect]
     Indication: PROSTATE CANCER METASTATIC
     Dosage: 4 MG/ 5ML ONCE PER 4 WEEKS.
     Route: 042
     Dates: start: 20111001
  3. ZOMETA [Suspect]
     Dosage: 4 MG/100ML, SOLUTION FOR INFUSION (INTRAVENOUS), 1X PER 28 DAYS
     Route: 042
     Dates: start: 20120322
  4. ZOLADEX [Concomitant]
     Dosage: 10.8 MG, ONCE PER 12 WEEKS
     Route: 058
  5. CASODEX [Concomitant]
     Dosage: 50 MG, ONCE DAILY

REACTIONS (5)
  - NEOPLASM MALIGNANT [None]
  - BONE PAIN [None]
  - NEOPLASM PROGRESSION [None]
  - GROIN PAIN [None]
  - PROSTATIC SPECIFIC ANTIGEN INCREASED [None]
